FAERS Safety Report 9711767 (Version 2)
Quarter: 2013Q4

REPORT INFORMATION
  Report Type: Spontaneous
  Country: US (occurrence: US)
  Receive Date: 20131126
  Receipt Date: 20131126
  Transmission Date: 20140711
  Serious: No
  Sender: FDA-Public Use
  Company Number: US-BRISTOL-MYERS SQUIBB COMPANY-18808717

PATIENT
  Age: 55 Year
  Sex: Male
  Weight: 134.69 kg

DRUGS (1)
  1. BYDUREON [Suspect]

REACTIONS (4)
  - Cellulitis [Recovering/Resolving]
  - Injection site nodule [Unknown]
  - Injection site rash [Unknown]
  - Diarrhoea [Recovering/Resolving]
